FAERS Safety Report 13524005 (Version 2)
Quarter: 2017Q3

REPORT INFORMATION
  Report Type: Spontaneous
  Country: US (occurrence: US)
  Receive Date: 20170508
  Receipt Date: 20170810
  Transmission Date: 20171127
  Serious: No
  Sender: FDA-Public Use
  Company Number: US-VIFOR (INTERNATIONAL) INC.-VIT-2016-09177

PATIENT
  Age: 45 Year
  Sex: Female
  Weight: 95.34 kg

DRUGS (16)
  1. ULORIC [Concomitant]
     Active Substance: FEBUXOSTAT
  2. COLECALCIFEROL [Concomitant]
     Active Substance: CHOLECALCIFEROL
  3. VELTASSA [Suspect]
     Active Substance: PATIROMER
     Route: 048
     Dates: start: 20161226
  4. CARVEDILOL. [Concomitant]
     Active Substance: CARVEDILOL
  5. WARFARIN [Concomitant]
     Active Substance: WARFARIN
  6. ATORVASTATIN [Concomitant]
     Active Substance: ATORVASTATIN
  7. LEVOTHYROXINE. [Concomitant]
     Active Substance: LEVOTHYROXINE
  8. TORASEMIDE [Concomitant]
     Active Substance: TORSEMIDE
  9. LYRICA [Concomitant]
     Active Substance: PREGABALIN
  10. VELTASSA [Suspect]
     Active Substance: PATIROMER
     Indication: HYPERKALAEMIA
     Route: 048
     Dates: start: 20161219
  11. ZANAFLEX [Concomitant]
     Active Substance: TIZANIDINE HYDROCHLORIDE
  12. WARFARIN [Concomitant]
     Active Substance: WARFARIN
  13. GABAPENTIN. [Concomitant]
     Active Substance: GABAPENTIN
  14. ROPINIROLE. [Concomitant]
     Active Substance: ROPINIROLE
  15. PERCOCET [Concomitant]
     Active Substance: ACETAMINOPHEN\OXYCODONE HYDROCHLORIDE
     Dosage: 7.5/325 AND 5/325
  16. PERCOCET [Concomitant]
     Active Substance: ACETAMINOPHEN\OXYCODONE HYDROCHLORIDE
     Dosage: 5/325

REACTIONS (8)
  - Drug administration error [Recovered/Resolved]
  - Vomiting [Recovered/Resolved]
  - Drug intolerance [Recovered/Resolved]
  - Inappropriate schedule of drug administration [Recovered/Resolved]
  - Product physical consistency issue [Recovered/Resolved]
  - Nausea [Recovered/Resolved]
  - Retching [Recovered/Resolved]
  - Product physical issue [Recovered/Resolved]

NARRATIVE: CASE EVENT DATE: 201612
